FAERS Safety Report 12554294 (Version 2)
Quarter: 2016Q3

REPORT INFORMATION
  Report Type: Spontaneous
  Country: HU (occurrence: HU)
  Receive Date: 20160713
  Receipt Date: 20160720
  Transmission Date: 20161109
  Serious: Yes (Death, Life-Threatening, Hospitalization)
  Sender: FDA-Public Use
  Company Number: HU-PFIZER INC-2016337340

PATIENT
  Age: 68 Year
  Sex: Female

DRUGS (7)
  1. CAVINTON [Concomitant]
     Active Substance: VINPOCETINE
     Dosage: UNK
     Route: 065
  2. TREXAN [Suspect]
     Active Substance: METHOTREXATE SODIUM
     Indication: RHEUMATOID ARTHRITIS
     Dosage: 5 MG, 3X/DAY
     Route: 065
     Dates: start: 20160503, end: 20160511
  3. CITROKALCIUM [Concomitant]
     Dosage: 200 MG, TWICE
     Route: 065
  4. XANAX [Concomitant]
     Active Substance: ALPRAZOLAM
     Dosage: UNK, 2X/DAY
     Route: 065
  5. MELOXICAM. [Concomitant]
     Active Substance: MELOXICAM
     Dosage: 15 MG, SINGLE
     Route: 065
  6. FOLIC ACID. [Concomitant]
     Active Substance: FOLIC ACID
     Dosage: 1 DF, ALTERNATE DAY
     Route: 065
  7. VITAMIN D3 FRESENIUS [Concomitant]
     Dosage: 1000 IU, UNK
     Route: 065

REACTIONS (11)
  - Overdose [Unknown]
  - Inappropriate schedule of drug administration [Unknown]
  - Pneumonia [Unknown]
  - Thrombocytopenia [Unknown]
  - Vomiting [Unknown]
  - Febrile neutropenia [Unknown]
  - Confusional state [Unknown]
  - Bone marrow failure [Fatal]
  - Sepsis [Fatal]
  - Diarrhoea [Unknown]
  - Septic shock [Fatal]

NARRATIVE: CASE EVENT DATE: 20160511
